FAERS Safety Report 9197707 (Version 1)
Quarter: 2013Q1

REPORT INFORMATION
  Report Type: Spontaneous
  Country: US (occurrence: US)
  Receive Date: 20130328
  Receipt Date: 20130328
  Transmission Date: 20140127
  Serious: No
  Sender: FDA-Public Use
  Company Number: US-GALDERMA-US-GDP-12413565

PATIENT
  Sex: Female
  Weight: 73 kg

DRUGS (3)
  1. CLOBEX [Suspect]
     Indication: PSORIASIS
     Route: 061
     Dates: start: 201006
  2. ZYRTEC D [Concomitant]
     Indication: MULTIPLE ALLERGIES
     Route: 048
  3. LEVSIN [Concomitant]
     Indication: IRRITABLE BOWEL SYNDROME

REACTIONS (3)
  - Hypotension [Recovered/Resolved]
  - Syncope [Recovered/Resolved]
  - Off label use [Not Recovered/Not Resolved]
